FAERS Safety Report 21797737 (Version 1)
Quarter: 2022Q4

REPORT INFORMATION
  Report Type: Report from Study
  Country: US (occurrence: US)
  Receive Date: 20221230
  Receipt Date: 20221230
  Transmission Date: 20230113
  Serious: No
  Sender: FDA-Public Use
  Company Number: US-ABBVIE-4206221

PATIENT
  Sex: Male

DRUGS (1)
  1. SKYRIZI [Suspect]
     Active Substance: RISANKIZUMAB-RZAA
     Indication: Psoriasis
     Dosage: WEEK 0, 4, AND EVERY 12 WEEKS THEREAFTER
     Route: 058
     Dates: start: 20220824

REACTIONS (5)
  - Nasopharyngitis [Not Recovered/Not Resolved]
  - Psoriasis [Recovering/Resolving]
  - Poor quality sleep [Unknown]
  - Sleep disorder [Recovering/Resolving]
  - Psoriatic arthropathy [Recovering/Resolving]

NARRATIVE: CASE EVENT DATE: 20220101
